FAERS Safety Report 22137661 (Version 15)
Quarter: 2023Q4

REPORT INFORMATION
  Report Type: Spontaneous
  Country: CA (occurrence: CA)
  Receive Date: 20230325
  Receipt Date: 20231009
  Transmission Date: 20240110
  Serious: Yes (Disabling, Other)
  Sender: FDA-Public Use
  Company Number: CA-CELLTRION INC.-2022CA008530

PATIENT

DRUGS (16)
  1. INFLECTRA [Suspect]
     Active Substance: INFLIXIMAB-DYYB
     Indication: Crohn^s disease
     Dosage: 10 MG/KG, WEEKS 0, 2 AND 6, THEN Q 8 WEEKS
     Route: 042
     Dates: start: 20220527
  2. INFLECTRA [Suspect]
     Active Substance: INFLIXIMAB-DYYB
     Dosage: 10 MG/KG, WEEKS 0, 2 AND 6, THEN Q 8 WEEKS
     Route: 042
     Dates: start: 20220908
  3. INFLECTRA [Suspect]
     Active Substance: INFLIXIMAB-DYYB
     Dosage: 10 MG/KG, WEEKS 0, 2 AND 6, THEN Q 8 WEEKS
     Route: 042
     Dates: start: 20221104
  4. INFLECTRA [Suspect]
     Active Substance: INFLIXIMAB-DYYB
     Dosage: 10 MG/KG, WEEKS 0, 2 AND 6, THEN Q 8 WEEKS
     Route: 042
     Dates: start: 20230113
  5. INFLECTRA [Suspect]
     Active Substance: INFLIXIMAB-DYYB
     Dosage: 10 MG/KG, EVERY 8 WEEKS
     Route: 042
     Dates: start: 20230403
  6. INFLECTRA [Suspect]
     Active Substance: INFLIXIMAB-DYYB
     Dosage: 990 MG, EVERY 8 WEEKS
     Route: 042
     Dates: start: 20230601
  7. INFLECTRA [Suspect]
     Active Substance: INFLIXIMAB-DYYB
     Dosage: 10 MG/KG, REINDUCTION WEEK, 0 ,2, 6 THEN MAINTENANCE EVERY 4 WEEKS
     Route: 042
     Dates: start: 20230815
  8. INFLECTRA [Suspect]
     Active Substance: INFLIXIMAB-DYYB
     Dosage: 10 MG/KG, EVERY 2 WEEKS (REINDUCTION WEEK 2)
     Route: 042
     Dates: start: 20230831
  9. INFLECTRA [Suspect]
     Active Substance: INFLIXIMAB-DYYB
     Dosage: 10 MG/KG, REINDUCTION WEEK, 0 ,2, 6 THEN MAINTENANCE EVERY 4 WKS (1000 MG, 4 WKS (WK 6 REINDUCTION))
     Route: 042
     Dates: start: 20230929
  10. PREDNISONE [Concomitant]
     Active Substance: PREDNISONE
     Dosage: 1 DF
     Dates: start: 20200120, end: 202305
  11. VENLAFAXINE [Concomitant]
     Active Substance: VENLAFAXINE HYDROCHLORIDE
     Dosage: 150 MG
  12. LANSOPRAZOLE [Concomitant]
     Active Substance: LANSOPRAZOLE
     Dosage: 30 MG
     Route: 048
  13. TACROLIMUS [Concomitant]
     Active Substance: TACROLIMUS
     Dosage: UNK
  14. MIRTAZAPINE [Concomitant]
     Active Substance: MIRTAZAPINE
     Dosage: 30 MG
  15. TEVA AZATHIOPRINE [Concomitant]
     Dosage: 50 MG
     Dates: start: 201805
  16. CYANOCOBALAMIN [Concomitant]
     Active Substance: CYANOCOBALAMIN
     Dosage: 100 UG
     Route: 048

REACTIONS (19)
  - Arthralgia [Recovered/Resolved]
  - Condition aggravated [Recovering/Resolving]
  - Infusion site extravasation [Recovered/Resolved]
  - Acne pustular [Unknown]
  - Cyst [Unknown]
  - Hidradenitis [Not Recovered/Not Resolved]
  - COVID-19 [Recovered/Resolved]
  - Herpes zoster [Recovered/Resolved]
  - Eczema [Not Recovered/Not Resolved]
  - Pyrexia [Recovered/Resolved]
  - Constipation [Not Recovered/Not Resolved]
  - Limb injury [Recovering/Resolving]
  - Decreased appetite [Unknown]
  - Fatigue [Not Recovered/Not Resolved]
  - Nausea [Unknown]
  - Herpes zoster [Unknown]
  - Off label use [Unknown]
  - Inappropriate schedule of product administration [Unknown]
  - Off label use [Unknown]

NARRATIVE: CASE EVENT DATE: 20220101
